FAERS Safety Report 15620655 (Version 1)
Quarter: 2018Q4

REPORT INFORMATION
  Report Type: Spontaneous
  Country: US (occurrence: US)
  Receive Date: 20181115
  Receipt Date: 20181115
  Transmission Date: 20190205
  Serious: No
  Sender: FDA-Public Use
  Company Number: US-KALEO, INC.-2018KL000155

PATIENT
  Age: 26 Year
  Sex: Female

DRUGS (1)
  1. EVZIO [Suspect]
     Active Substance: NALOXONE HYDROCHLORIDE
     Indication: TOXICITY TO VARIOUS AGENTS

REACTIONS (1)
  - Oral discharge [Recovered/Resolved]

NARRATIVE: CASE EVENT DATE: 2018
